FAERS Safety Report 5330159-3 (Version None)
Quarter: 2007Q2

REPORT INFORMATION
  Report Type: 
  Country: None (occurrence: None)
  Receive Date: 20070521
  Receipt Date: 20070508
  Transmission Date: 20071010
  Serious: Yes (Hospitalization, Other)
  Sender: FDA-Public Use
  Company Number: US-ELI_LILLY_AND_COMPANY-US200611001959

PATIENT
  Age: 71 Year
  Sex: Male

DRUGS (2)
  1. FORTEO [Suspect]
     Indication: OSTEOPOROSIS
     Dosage: 20 UG, UNK
     Dates: start: 20060201, end: 20060401
  2. LOVASTATIN [Concomitant]

REACTIONS (3)
  - FALL [None]
  - GAIT DISTURBANCE [None]
  - PLASMACYTOMA [None]
